FAERS Safety Report 5256974-2 (Version None)
Quarter: 2007Q1

REPORT INFORMATION
  Report Type: 
  Country: None (occurrence: None)
  Receive Date: 20070305
  Receipt Date: 20070305
  Transmission Date: 20070707
  Serious: Yes (Other)
  Sender: FDA-Public Use
  Company Number: None

PATIENT
  Age: 70 Year
  Sex: Female
  Weight: 81 kg

DRUGS (1)
  1. VAPRISOL [Suspect]
     Indication: HYPONATRAEMIA
     Dosage: 20 MG ONCE IV BOLUS 20MG CONT. INFUSION IV DRIP
     Route: 040
     Dates: start: 20070301, end: 20070301

REACTIONS (1)
  - ATRIAL FIBRILLATION [None]
